FAERS Safety Report 8144066-4 (Version None)
Quarter: 2012Q1

REPORT INFORMATION
  Report Type: 
  Country: None (occurrence: None)
  Receive Date: 20120217
  Receipt Date: 20120207
  Transmission Date: 20120608
  Serious: Yes (Hospitalization)
  Sender: FDA-Public Use
  Company Number: US-CELGENEUS-163-21880-12020780

PATIENT
  Age: 66 Year
  Sex: Male
  Weight: 77 kg

DRUGS (6)
  1. SIMVASTATIN [Concomitant]
     Route: 065
  2. REVLIMID [Suspect]
     Dosage: 25 MILLIGRAM
     Route: 048
     Dates: start: 20050908
  3. REVLIMID [Suspect]
     Dosage: 25 MILLIGRAM
     Route: 048
     Dates: start: 20120109
  4. DEXAMETHASONE [Suspect]
     Dosage: 40 MILLIGRAM
     Route: 048
     Dates: start: 20050908, end: 20080306
  5. RAMIPRIL [Concomitant]
     Route: 065
  6. NOVOLOG [Suspect]
     Route: 065

REACTIONS (5)
  - VENTRICULAR TACHYCARDIA [None]
  - VOMITING [None]
  - CONFUSIONAL STATE [None]
  - HYPERGLYCAEMIA [None]
  - HYPERKALAEMIA [None]
